FAERS Safety Report 22319032 (Version 3)
Quarter: 2023Q2

REPORT INFORMATION
  Report Type: Spontaneous
  Country: ES (occurrence: ES)
  Receive Date: 20230515
  Receipt Date: 20230614
  Transmission Date: 20230722
  Serious: Yes (Other)
  Sender: FDA-Public Use
  Company Number: ES-ASTELLAS-2023US014643

PATIENT
  Age: 66 Year
  Sex: Male

DRUGS (4)
  1. ENFORTUMAB VEDOTIN [Suspect]
     Active Substance: ENFORTUMAB VEDOTIN
     Indication: Bladder cancer
     Dosage: UNK UNK, CYCLIC (DAY 1, 8 AND +15 ADMINISTRATION IN 28-DAY CYCLES)
     Route: 042
     Dates: start: 20220630
  2. ENFORTUMAB VEDOTIN [Suspect]
     Active Substance: ENFORTUMAB VEDOTIN
     Dosage: 1 MG/KG, CYCLIC (DAY 1, 8 AND +15 ADMINISTRATION IN 28-DAY CYCLES)
     Route: 042
     Dates: start: 20221115, end: 20230127
  3. GABAPENTIN [Concomitant]
     Active Substance: GABAPENTIN
     Indication: Product used for unknown indication
     Route: 065
  4. GABAPENTIN [Concomitant]
     Active Substance: GABAPENTIN
     Route: 065

REACTIONS (1)
  - Polyradiculoneuropathy [Recovering/Resolving]

NARRATIVE: CASE EVENT DATE: 20230201
